FAERS Safety Report 23693348 (Version 5)
Quarter: 2025Q3

REPORT INFORMATION
  Report Type: Spontaneous
  Country: US (occurrence: US)
  Receive Date: 20240401
  Receipt Date: 20250828
  Transmission Date: 20251020
  Serious: Yes (Other)
  Sender: PFIZER
  Company Number: US-PFIZER INC-PV202400042396

PATIENT
  Age: 80 Year
  Sex: Female

DRUGS (1)
  1. XELJANZ XR [Suspect]
     Active Substance: TOFACITINIB CITRATE

REACTIONS (6)
  - Pneumonia [Unknown]
  - Sciatica [Unknown]
  - Pain [Unknown]
  - Frustration tolerance decreased [Unknown]
  - Oropharyngeal discomfort [Unknown]
  - Confusional state [Unknown]
